FAERS Safety Report 4407946-9 (Version None)
Quarter: 2004Q2

REPORT INFORMATION
  Report Type: 
  Country: None (occurrence: None)
  Receive Date: 20040618
  Receipt Date: 20040323
  Transmission Date: 20050107
  Serious: No
  Sender: FDA-Public Use
  Company Number: US-JNJFOC-20040305630

PATIENT
  Age: 31 Year
  Sex: Female
  Weight: 59.8748 kg

DRUGS (6)
  1. ORTHO EVRA [Suspect]
     Indication: MENORRHAGIA
     Dosage: 1 DOSE(S), 3 IN 4 WEEK, TRANSDERMAL
     Route: 062
     Dates: start: 20030501
  2. ADVAIR (SERETRIDE MITE) [Concomitant]
  3. PROTONIX [Concomitant]
  4. CARAFATE [Concomitant]
  5. NASOCORT (BUDESONIDE) SPRAY [Concomitant]
  6. SINGULARI (MONTELUKAST SODIUM) [Concomitant]

REACTIONS (2)
  - ARTHRALGIA [None]
  - JOINT SWELLING [None]
